FAERS Safety Report 13889536 (Version 2)
Quarter: 2017Q4

REPORT INFORMATION
  Report Type: Spontaneous
  Country: AU (occurrence: AU)
  Receive Date: 20170822
  Receipt Date: 20171108
  Transmission Date: 20180320
  Serious: Yes (Hospitalization)
  Sender: FDA-Public Use
  Company Number: AU-ASTRAZENECA-2017SE83822

PATIENT
  Age: 90 Year
  Sex: Female
  Weight: 73 kg

DRUGS (19)
  1. DIGOXIN. [Concomitant]
     Active Substance: DIGOXIN
     Indication: CARDIAC DISORDER
     Dosage: 62.5UG UNKNOWN
  2. CARDIZEM [Concomitant]
     Active Substance: DILTIAZEM HYDROCHLORIDE
     Indication: CARDIAC DISORDER
     Dosage: 240.0MG UNKNOWN
  3. NORMISON [Concomitant]
     Active Substance: TEMAZEPAM
     Indication: SLEEP DISORDER
     Dosage: 10.0MG UNKNOWN
  4. OROXINE [Concomitant]
     Active Substance: LEVOTHYROXINE SODIUM
     Indication: THYROID HORMONE REPLACEMENT THERAPY
     Dosage: 50 UG, 1 BEFORE BREAKFAST
  5. LASIX [Concomitant]
     Active Substance: FUROSEMIDE
     Indication: CARDIAC DISORDER
     Dosage: 40.0MG UNKNOWN
  6. LIPITOR [Concomitant]
     Active Substance: ATORVASTATIN CALCIUM
     Dosage: 20.0MG UNKNOWN
  7. CENOVIS WOMEN^S MULTIVITAMIN [Concomitant]
  8. FESS [Concomitant]
  9. FISH OIL [Concomitant]
     Active Substance: FISH OIL
     Indication: CARDIAC DISORDER
     Dosage: 1000.0MG UNKNOWN
  10. TENORMIN [Concomitant]
     Active Substance: ATENOLOL
  11. SYMBICORT [Suspect]
     Active Substance: BUDESONIDE\FORMOTEROL FUMARATE DIHYDRATE
     Indication: ASTHMA
     Dosage: 200/6, TAKES 2 INHALATIONS
     Route: 055
     Dates: start: 20170614
  12. SALBUTAMOL [Concomitant]
     Active Substance: ALBUTEROL
  13. IRON [Concomitant]
     Active Substance: IRON
  14. LOMOTIL [Concomitant]
     Active Substance: ATROPINE SULFATE\DIPHENOXYLATE HYDROCHLORIDE
  15. CALTRATE [Concomitant]
     Active Substance: CALCIUM CARBONATE
  16. ELIQUIS [Concomitant]
     Active Substance: APIXABAN
     Indication: ANTICOAGULANT THERAPY
     Dosage: 2.5MG UNKNOWN
  17. OROXINE [Concomitant]
     Active Substance: LEVOTHYROXINE SODIUM
     Indication: THYROID HORMONE REPLACEMENT THERAPY
     Dosage: 100 UG, 1 BEFORE BREAKFAST
  18. PROLIA [Concomitant]
     Active Substance: DENOSUMAB
     Dosage: 60 MG/ML, EVERY SIX MONTHS
  19. FEXOFENADINE [Concomitant]
     Active Substance: FEXOFENADINE\FEXOFENADINE HYDROCHLORIDE

REACTIONS (4)
  - Dysgeusia [Unknown]
  - Cardiac failure [Unknown]
  - Intentional product use issue [Unknown]
  - Decreased appetite [Unknown]
